FAERS Safety Report 9655907 (Version 3)
Quarter: 2013Q4

REPORT INFORMATION
  Report Type: Spontaneous
  Country: JP (occurrence: JP)
  Receive Date: 20131030
  Receipt Date: 20131231
  Transmission Date: 20140711
  Serious: Yes (Hospitalization)
  Sender: FDA-Public Use
  Company Number: JP-BRISTOL-MYERS SQUIBB COMPANY-19657121

PATIENT
  Age: 64 Year
  Sex: Male
  Weight: 60 kg

DRUGS (8)
  1. BYDUREON [Suspect]
     Indication: TYPE 2 DIABETES MELLITUS
     Route: 058
     Dates: start: 20130801, end: 20131010
  2. AMARYL [Concomitant]
     Indication: TYPE 2 DIABETES MELLITUS
     Dosage: TAB
     Route: 048
     Dates: start: 20100908, end: 20131011
  3. METGLUCO [Concomitant]
     Indication: TYPE 2 DIABETES MELLITUS
     Dosage: TAB
     Dates: start: 20130723
  4. TELMISARTAN [Concomitant]
     Indication: HYPERTENSION
     Dosage: TAB
     Route: 048
     Dates: start: 20100519
  5. OMEPRAL [Concomitant]
     Dosage: TAB
     Route: 048
     Dates: start: 20081020
  6. ALLEGRA [Concomitant]
     Indication: DERMATITIS ALLERGIC
     Dosage: TAB
     Route: 048
     Dates: start: 20111012
  7. HERBESSER R [Concomitant]
     Indication: HYPERTENSION
     Route: 048
     Dates: start: 20110411
  8. VILDAGLIPTIN [Concomitant]
     Indication: TYPE 2 DIABETES MELLITUS
     Dates: start: 201306, end: 20130801

REACTIONS (3)
  - Pancreatitis acute [Recovering/Resolving]
  - Pancreatitis relapsing [Recovering/Resolving]
  - Nausea [Recovered/Resolved]
